FAERS Safety Report 17051542 (Version 1)
Quarter: 2019Q4

REPORT INFORMATION
  Report Type: Spontaneous
  Country: FR (occurrence: FR)
  Receive Date: 20191120
  Receipt Date: 20191120
  Transmission Date: 20200122
  Serious: Yes (Hospitalization)
  Sender: FDA-Public Use
  Company Number: FR-AUROBINDO-AUR-APL-2019-073519

PATIENT
  Age: 34 Year
  Sex: Female
  Weight: 60 kg

DRUGS (6)
  1. CAPECITABINE. [Suspect]
     Active Substance: CAPECITABINE
     Indication: TRIPLE NEGATIVE BREAST CANCER
     Dosage: UNK
     Route: 065
  2. DEXERYL [Concomitant]
     Indication: PRODUCT USED FOR UNKNOWN INDICATION
     Dosage: UNK
     Route: 065
     Dates: start: 20160523, end: 20170201
  3. COBIMETINIB. [Suspect]
     Active Substance: COBIMETINIB
     Indication: TRIPLE NEGATIVE BREAST CANCER
     Dosage: 1UNK, ONCE A DAY, DATE OF MOST RECENT DOSE: 30/DEC/2016
     Route: 048
     Dates: start: 20160525
  4. TEMESTA [Concomitant]
     Indication: INSOMNIA
     Dosage: 1 MILLIGRAM
     Route: 048
     Dates: start: 20160926
  5. HEXAMEDINE [Concomitant]
     Indication: RASH
     Dosage: 0.1 PERCENT
     Route: 061
     Dates: start: 20160920
  6. PACLITAXEL. [Suspect]
     Active Substance: PACLITAXEL
     Indication: TRIPLE NEGATIVE BREAST CANCER
     Dosage: 80 MILLIGRAM/SQ. METER, EVERY WEEK,DOSE AS PER PROTOCOL; DATE OF MOST RECENT DOSE: 19/DEC/2016
     Route: 042
     Dates: start: 20160523

REACTIONS (1)
  - Mucosal inflammation [Recovered/Resolved]

NARRATIVE: CASE EVENT DATE: 20170120
